FAERS Safety Report 4351926-9 (Version None)
Quarter: 2004Q2

REPORT INFORMATION
  Report Type: 
  Country: None (occurrence: None)
  Receive Date: 20040429
  Receipt Date: 20040122
  Transmission Date: 20050107
  Serious: No
  Sender: FDA-Public Use
  Company Number: 2004-112548-NL

PATIENT
  Age: 21 Year
  Sex: Female
  Weight: 113.63 kg

DRUGS (2)
  1. NUVARING [Suspect]
     Indication: CONTRACEPTION
     Dosage: DF DAILY VAGINAL
     Route: 067
     Dates: start: 20031127
  2. MULTI-VITAMINS [Concomitant]

REACTIONS (1)
  - WITHDRAWAL BLEEDING IRREGULAR [None]
